FAERS Safety Report 13922548 (Version 1)
Quarter: 2017Q3

REPORT INFORMATION
  Report Type: Spontaneous
  Country: FR (occurrence: FR)
  Receive Date: 20170830
  Receipt Date: 20170830
  Transmission Date: 20171127
  Serious: Yes (Hospitalization, Other)
  Sender: FDA-Public Use
  Company Number: FR-BRISTOL-MYERS SQUIBB COMPANY-BMS-2017-075924

PATIENT
  Age: 84 Year
  Sex: Male

DRUGS (1)
  1. COUMADINE [Suspect]
     Active Substance: WARFARIN SODIUM
     Indication: PULMONARY EMBOLISM
     Dosage: UNK
     Route: 048
     Dates: start: 2013

REACTIONS (7)
  - Gastrointestinal haemorrhage [Unknown]
  - Escherichia test positive [Unknown]
  - Fall [Unknown]
  - International normalised ratio increased [Recovered/Resolved]
  - Acute kidney injury [Unknown]
  - Overdose [Unknown]
  - Sepsis [Unknown]

NARRATIVE: CASE EVENT DATE: 20170510
